FAERS Safety Report 4763721-7 (Version None)
Quarter: 2005Q3

REPORT INFORMATION
  Report Type: 
  Country: None (occurrence: None)
  Receive Date: 20050908
  Receipt Date: 20050616
  Transmission Date: 20060218
  Serious: Yes (Other)
  Sender: FDA-Public Use
  Company Number: US-ROCHE-407985

PATIENT
  Age: 58 Year
  Sex: Female
  Weight: 77.1 kg

DRUGS (6)
  1. PEGASYS [Suspect]
     Indication: HEPATITIS C
     Route: 058
     Dates: start: 20050104
  2. PEGASYS [Suspect]
     Route: 058
  3. COPEGUS [Suspect]
     Indication: DRUG USE FOR UNKNOWN INDICATION
     Route: 048
     Dates: start: 20050104
  4. ZOLOFT [Concomitant]
     Route: 048
  5. CELEBREX [Concomitant]
     Route: 048
  6. BENICAR [Concomitant]
     Route: 048

REACTIONS (2)
  - GOITRE [None]
  - HAEMOPTYSIS [None]
